FAERS Safety Report 11339397 (Version 1)
Quarter: 2015Q3

REPORT INFORMATION
  Report Type: Spontaneous
  Country: KR (occurrence: KR)
  Receive Date: 20150805
  Receipt Date: 20150805
  Transmission Date: 20151125
  Serious: Yes (Hospitalization)
  Sender: FDA-Public Use
  Company Number: KR-AMGEN-KORCT2015078214

PATIENT
  Age: 46 Year
  Sex: Female

DRUGS (6)
  1. CYCLOPHOSPHAMIDE. [Concomitant]
     Active Substance: CYCLOPHOSPHAMIDE
     Dosage: 1245 MG, UNK
     Route: 042
     Dates: start: 20150714, end: 20150714
  2. VINCRISTINE [Concomitant]
     Active Substance: VINCRISTINE
     Dosage: 2 MG, UNK
     Route: 042
     Dates: start: 20150714, end: 20150714
  3. G-LASTA [Suspect]
     Active Substance: PEGFILGRASTIM
     Indication: FEBRILE NEUTROPENIA
     Dosage: 6 MG, Q3WK
     Route: 058
     Dates: start: 20150715
  4. RITUXIMAB [Concomitant]
     Active Substance: RITUXIMAB
     Dosage: 622.5 MG, UNK
     Route: 042
     Dates: start: 20150714, end: 20150714
  5. PREDNISOLONE. [Concomitant]
     Active Substance: PREDNISOLONE
     Dosage: 60 MG, UNK
     Route: 048
     Dates: start: 20150714, end: 20150714
  6. DOXORUBICIN [Concomitant]
     Active Substance: DOXORUBICIN
     Dosage: 50 MG, UNK
     Route: 042
     Dates: start: 20150714, end: 20150714

REACTIONS (1)
  - Neutropenia [Recovered/Resolved]

NARRATIVE: CASE EVENT DATE: 20150723
